FAERS Safety Report 18398958 (Version 1)
Quarter: 2020Q4

REPORT INFORMATION
  Report Type: Spontaneous
  Country: JP (occurrence: JP)
  Receive Date: 20201019
  Receipt Date: 20201019
  Transmission Date: 20210114
  Serious: Yes (Life-Threatening, Hospitalization)
  Sender: FDA-Public Use
  Company Number: JP-BAYER-2020-222344

PATIENT
  Age: 68 Year
  Sex: Male
  Weight: 53 kg

DRUGS (6)
  1. STIVARGA [Suspect]
     Active Substance: REGORAFENIB
     Indication: COLON CANCER
     Dosage: 4 DF, QD
     Route: 048
     Dates: start: 20200923, end: 20201007
  2. GOSHAJINKIGAN [Concomitant]
     Active Substance: HERBALS
  3. LYRICA [Concomitant]
     Active Substance: PREGABALIN
     Dosage: 25 MG
  4. MAGMITT [Concomitant]
     Active Substance: MAGNESIUM OXIDE
     Dosage: 330 MG
  5. DAIKENCHUTO [Concomitant]
     Active Substance: HERBALS
  6. FAMOTIDINE OD ME [Concomitant]
     Dosage: 20 MG

REACTIONS (1)
  - Platelet count decreased [Recovering/Resolving]

NARRATIVE: CASE EVENT DATE: 20201007
